FAERS Safety Report 22253005 (Version 1)
Quarter: 2023Q2

REPORT INFORMATION
  Report Type: Spontaneous
  Country: US (occurrence: US)
  Receive Date: 20230426
  Receipt Date: 20230426
  Transmission Date: 20230722
  Serious: No
  Sender: FDA-Public Use
  Company Number: US-Accord-292967

PATIENT
  Sex: Male
  Weight: 80.29 kg

DRUGS (1)
  1. SIMVASTATIN [Suspect]
     Active Substance: SIMVASTATIN
     Indication: Blood cholesterol increased
     Dosage: STRENGTH: 80MG (PREVIOUSLY TAKING 80MG), ONCE A DAY
     Route: 048

REACTIONS (2)
  - Dyspepsia [Unknown]
  - Wrong technique in product usage process [Unknown]
